FAERS Safety Report 5802766-2 (Version None)
Quarter: 2008Q3

REPORT INFORMATION
  Report Type: 
  Country: None (occurrence: None)
  Receive Date: 20080708
  Receipt Date: 20080623
  Transmission Date: 20090109
  Serious: Yes (Hospitalization)
  Sender: FDA-Public Use
  Company Number: FR-ELI_LILLY_AND_COMPANY-FR200806005765

PATIENT
  Sex: Male
  Weight: 33 kg

DRUGS (2)
  1. HUMATROPE [Suspect]
     Indication: GROWTH HORMONE DEFICIENCY
     Dosage: 1 MG, DAILY (1/D)
     Dates: start: 20040707
  2. INSULINE [Concomitant]
     Indication: TYPE 1 DIABETES MELLITUS
     Dosage: UNK, UNKNOWN
     Dates: start: 19980301

REACTIONS (3)
  - FALL [None]
  - HEAD INJURY [None]
  - SYNCOPE [None]
